FAERS Safety Report 4432651-2 (Version None)
Quarter: 2004Q3

REPORT INFORMATION
  Report Type: 
  Country: None (occurrence: None)
  Receive Date: 20040820
  Receipt Date: 20040807
  Transmission Date: 20050211
  Serious: Yes (Other)
  Sender: FDA-Public Use
  Company Number: 2004055008

PATIENT
  Sex: Female

DRUGS (2)
  1. NEURONTIN [Suspect]
  2. HYDROCORTISONE [Suspect]

REACTIONS (2)
  - ARTHRALGIA [None]
  - PAIN IN EXTREMITY [None]
